FAERS Safety Report 10159467 (Version 2)
Quarter: 2014Q2

REPORT INFORMATION
  Report Type: Spontaneous
  Country: US (occurrence: None)
  Receive Date: 20140506
  Receipt Date: 20140623
  Transmission Date: 20141212
  Serious: Yes (Other)
  Sender: FDA-Public Use
  Company Number: 2014P1003648

PATIENT
  Age: 30 Year
  Sex: Female

DRUGS (1)
  1. MYORISAN 20MG [Suspect]
     Indication: ACNE
     Route: 048
     Dates: start: 20140409

REACTIONS (3)
  - Depression [None]
  - Fatigue [None]
  - Emotional disorder [None]
